FAERS Safety Report 11103827 (Version 1)
Quarter: 2015Q2

REPORT INFORMATION
  Report Type: Report from Study
  Country: US (occurrence: None)
  Receive Date: 20150508
  Receipt Date: 20150508
  Transmission Date: 20150821
  Serious: Yes (Other)
  Sender: FDA-Public Use
  Company Number: US-2015CRT000310

PATIENT
  Age: 46 Year
  Sex: Female

DRUGS (16)
  1. BACLOFEN. [Concomitant]
     Active Substance: BACLOFEN
  2. LOSARTAN [Concomitant]
     Active Substance: LOSARTAN
  3. LYRICA [Concomitant]
     Active Substance: PREGABALIN
  4. KORLYM [Suspect]
     Active Substance: MIFEPRISTONE
     Indication: CUSHING^S SYNDROME
     Dosage: 300 MG, QOD, ORAL
     Route: 048
     Dates: start: 20140828
  5. OMEPRAZOLE. [Concomitant]
     Active Substance: OMEPRAZOLE
  6. NORCO (HYDROCODONE BITARTRATE, PARACETAMOL) [Concomitant]
  7. PATANASE (OLOPATADINE HYDROCHLORIDE) [Concomitant]
  8. NASONEX [Concomitant]
     Active Substance: MOMETASONE FUROATE
  9. MELATONIN [Concomitant]
     Active Substance: MELATONIN
  10. ALDACTONE [Concomitant]
     Active Substance: SPIRONOLACTONE
  11. PROVIGIL [Concomitant]
     Active Substance: MODAFINIL
  12. AMLODIPINE [Concomitant]
     Active Substance: AMLODIPINE BESYLATE
  13. ULTRAM ER (TRAMADOL HYDROCHLORIDE) [Concomitant]
  14. DIAZEPAM. [Concomitant]
     Active Substance: DIAZEPAM
  15. CELEBREX [Concomitant]
     Active Substance: CELECOXIB
  16. AMBIEN [Concomitant]
     Active Substance: ZOLPIDEM TARTRATE

REACTIONS (17)
  - Glycosylated haemoglobin decreased [None]
  - Ocular discomfort [None]
  - Pain in extremity [None]
  - Constipation [None]
  - Weight decreased [None]
  - Fatigue [None]
  - Arthralgia [None]
  - Blood pressure increased [None]
  - Eye pain [None]
  - Joint swelling [None]
  - Nausea [None]
  - Adrenal neoplasm [None]
  - Asthenia [None]
  - Hot flush [None]
  - Heart rate increased [None]
  - Erythromelalgia [None]
  - Condition aggravated [None]

NARRATIVE: CASE EVENT DATE: 2014
